FAERS Safety Report 26172680 (Version 1)
Quarter: 2025Q4

REPORT INFORMATION
  Report Type: Spontaneous
  Country: EU (occurrence: EU)
  Receive Date: 20251218
  Receipt Date: 20251218
  Transmission Date: 20260118
  Serious: Yes (Hospitalization, Other)
  Sender: AUROBINDO
  Company Number: EU-AEMPS-1785447

PATIENT
  Age: 72 Year
  Sex: Female

DRUGS (6)
  1. ACETAMINOPHEN [Suspect]
     Active Substance: ACETAMINOPHEN
     Indication: Pain
     Dosage: 3 GRAM, ONCE A DAY
     Route: 061
     Dates: start: 20250716, end: 20250909
  2. LEVOFLOXACIN [Suspect]
     Active Substance: LEVOFLOXACIN
     Indication: Osteomyelitis bacterial
     Dosage: 500 MILLIGRAM, ONCE A DAY
     Route: 061
     Dates: start: 20250825, end: 20250907
  3. ATORVASTATIN [Suspect]
     Active Substance: ATORVASTATIN
     Indication: Dyslipidaemia
     Dosage: 40 MILLIGRAM, ONCE A DAY
     Route: 061
     Dates: start: 202506, end: 20250907
  4. CLOPIDOGREL [Suspect]
     Active Substance: CLOPIDOGREL BISULFATE
     Indication: Hypertensive heart disease
     Dosage: 75 MILLIGRAM, ONCE A DAY
     Route: 061
     Dates: start: 20250805, end: 20250905
  5. LEVOFLOXACIN [Concomitant]
     Active Substance: LEVOFLOXACIN
     Indication: Osteomyelitis bacterial
     Dosage: 750 MILLIGRAM, ONCE A DAY
     Route: 061
     Dates: start: 20250725, end: 20250825
  6. RIFAMPIN [Concomitant]
     Active Substance: RIFAMPIN
     Indication: Osteomyelitis bacterial
     Dosage: 600 MILLIGRAM, ONCE A DAY
     Route: 061
     Dates: start: 20250721, end: 20250729

REACTIONS (1)
  - Hepatitis cholestatic [Recovering/Resolving]

NARRATIVE: CASE EVENT DATE: 20250826
